FAERS Safety Report 7463623-1 (Version None)
Quarter: 2011Q2

REPORT INFORMATION
  Report Type: 
  Country: None (occurrence: None)
  Receive Date: 20110506
  Receipt Date: 20110427
  Transmission Date: 20111010
  Serious: Yes (Other)
  Sender: FDA-Public Use
  Company Number: US-SANOFI-AVENTIS-2011SA017559

PATIENT
  Age: 81 Year
  Sex: Female
  Weight: 90.71 kg

DRUGS (5)
  1. LANTUS [Suspect]
     Indication: TYPE 2 DIABETES MELLITUS
     Dosage: 14 UNITS IN AM AND 16 UNITS IN PM
     Route: 058
     Dates: start: 20090101
  2. METROPOLOL [Concomitant]
  3. LISINOPRIL [Concomitant]
  4. OPTICLICK [Suspect]
     Indication: TYPE 2 DIABETES MELLITUS
     Dates: start: 20090101
  5. GLYBURIDE [Concomitant]

REACTIONS (3)
  - AORTIC VALVE REPLACEMENT [None]
  - BLOOD GLUCOSE INCREASED [None]
  - SKIN DISORDER [None]
